FAERS Safety Report 6944453-3 (Version None)
Quarter: 2010Q3

REPORT INFORMATION
  Report Type: 
  Country: None (occurrence: None)
  Receive Date: 20100827
  Receipt Date: 20100817
  Transmission Date: 20110219
  Serious: Yes (Hospitalization)
  Sender: FDA-Public Use
  Company Number: ES-PFIZER INC-2010103631

PATIENT
  Age: 69 Year
  Sex: Male

DRUGS (8)
  1. LYRICA [Suspect]
     Indication: POST HERPETIC NEURALGIA
     Dosage: 25 MG, 1X/DAY
     Route: 048
     Dates: start: 20100127, end: 20100626
  2. OMEPRAZOLE [Concomitant]
     Dosage: 20 MG, 2X/DAY
     Route: 048
     Dates: start: 20040101
  3. SODIUM BICARBONATE [Concomitant]
     Dosage: UNK
  4. ACFOL [Concomitant]
     Dosage: 5 MG
     Route: 048
     Dates: start: 20040101
  5. ASPIRIN [Concomitant]
     Dosage: 100 MG, 1X/DAY
     Route: 048
  6. BOREA [Concomitant]
     Dosage: UNK
     Route: 048
  7. HIDROFEROL [Concomitant]
     Dosage: 1.5ML
     Route: 048
  8. RENAGEL [Concomitant]
     Dosage: 800MG

REACTIONS (1)
  - JAUNDICE CHOLESTATIC [None]
